FAERS Safety Report 13873945 (Version 2)
Quarter: 2017Q3

REPORT INFORMATION
  Report Type: Report from Study
  Country: CO (occurrence: CO)
  Receive Date: 20170816
  Receipt Date: 20170831
  Transmission Date: 20171127
  Serious: Yes (Other)
  Sender: FDA-Public Use
  Company Number: PHHY2017CO102043

PATIENT
  Age: 57 Year
  Sex: Male
  Weight: 106 kg

DRUGS (3)
  1. REVOLADE [Suspect]
     Active Substance: ELTROMBOPAG
     Indication: THROMBOCYTOPENIC PURPURA
     Dosage: 25 MG, QD
     Route: 048
     Dates: start: 20161102
  2. REVOLADE [Suspect]
     Active Substance: ELTROMBOPAG
     Dosage: 25 MG, QD (MONDAY TO FRIDAY)
     Route: 048
     Dates: start: 20170705
  3. REVOLADE [Suspect]
     Active Substance: ELTROMBOPAG
     Dosage: 25 MG, UNK (EVERY 8 DAYS)
     Route: 048
     Dates: start: 20170612

REACTIONS (4)
  - Platelet count decreased [Unknown]
  - Inappropriate schedule of drug administration [Unknown]
  - Prostate cancer [Unknown]
  - Drug prescribing error [Unknown]

NARRATIVE: CASE EVENT DATE: 20170612
